FAERS Safety Report 17428040 (Version 1)
Quarter: 2020Q1

REPORT INFORMATION
  Report Type: Spontaneous
  Country: GB (occurrence: GB)
  Receive Date: 20200218
  Receipt Date: 20200218
  Transmission Date: 20200409
  Serious: Yes (Other)
  Sender: FDA-Public Use
  Company Number: NVSC2020GB040703

PATIENT
  Age: 63 Year
  Sex: Female

DRUGS (1)
  1. ESTRADOT [Suspect]
     Active Substance: ESTRADIOL
     Indication: HORMONE REPLACEMENT THERAPY
     Dosage: 75 UG, BIW
     Route: 062

REACTIONS (4)
  - Angina pectoris [Unknown]
  - Blood cholesterol increased [Unknown]
  - Product dose omission [Unknown]
  - Thyroid disorder [Unknown]
